FAERS Safety Report 22186506 (Version 1)
Quarter: 2023Q2

REPORT INFORMATION
  Report Type: Spontaneous
  Country: PL (occurrence: None)
  Receive Date: 20230407
  Receipt Date: 20230407
  Transmission Date: 20230722
  Serious: Yes (Other)
  Sender: FDA-Public Use
  Company Number: PL-ROCHE-3324033

PATIENT
  Sex: Female

DRUGS (1)
  1. ROZLYTREK [Suspect]
     Active Substance: ENTRECTINIB
     Indication: Product used for unknown indication
     Route: 065
     Dates: start: 20230227

REACTIONS (4)
  - Inflammatory marker increased [Unknown]
  - Asthenia [Unknown]
  - Body temperature increased [Unknown]
  - Infection [Unknown]
